FAERS Safety Report 7005224-5 (Version None)
Quarter: 2010Q3

REPORT INFORMATION
  Report Type: 
  Country: None (occurrence: None)
  Receive Date: 20100920
  Receipt Date: 20100920
  Transmission Date: 20110219
  Serious: Yes (Other)
  Sender: FDA-Public Use
  Company Number: None

PATIENT
  Sex: Female
  Weight: 45.3597 kg

DRUGS (1)
  1. PERCOCET [Suspect]
     Indication: PAIN
     Dosage: 10 MG QID ORAL TAKEN SEVERAL YEARS DUE TO CHRONIC PAIN IN RT HIP AND OTHER JOINTS
     Route: 048

REACTIONS (3)
  - DRUG EFFECT DECREASED [None]
  - PRODUCT MEASURED POTENCY ISSUE [None]
  - PRODUCT SUBSTITUTION ISSUE [None]
